FAERS Safety Report 17221763 (Version 5)
Quarter: 2021Q3

REPORT INFORMATION
  Report Type: Report from Study
  Country: JP (occurrence: JP)
  Receive Date: 20200101
  Receipt Date: 20210913
  Transmission Date: 20211014
  Serious: Yes (Hospitalization, Other)
  Sender: FDA-Public Use
  Company Number: JP-ROCHE-2497933

PATIENT
  Age: 84 Year
  Sex: Male

DRUGS (17)
  1. BEVACIZUMAB. [Suspect]
     Active Substance: BEVACIZUMAB
     Route: 041
     Dates: start: 20191107, end: 20191107
  2. SILODOSIN. [Concomitant]
     Active Substance: SILODOSIN
     Indication: BENIGN PROSTATIC HYPERPLASIA
     Route: 048
     Dates: start: 2009
  3. BEVACIZUMAB. [Suspect]
     Active Substance: BEVACIZUMAB
     Route: 041
     Dates: start: 20200130, end: 20200130
  4. BEVACIZUMAB. [Suspect]
     Active Substance: BEVACIZUMAB
     Route: 041
     Dates: start: 20210716
  5. PURSENNIDE [Concomitant]
     Indication: CONSTIPATION
     Dosage: DOSAGE IS UNCERTAIN.
     Route: 048
     Dates: start: 2009
  6. DURVALUMAB. [Concomitant]
     Active Substance: DURVALUMAB
     Indication: HEPATOCELLULAR CARCINOMA
     Route: 065
     Dates: start: 20191017, end: 20191017
  7. BAYASPIRIN [Concomitant]
     Active Substance: ASPIRIN
     Indication: CARDIOVASCULAR EVENT PROPHYLAXIS
     Dosage: DOSAGE IS UNCERTAIN.
     Route: 048
     Dates: start: 2009
  8. BEVACIZUMAB. [Suspect]
     Active Substance: BEVACIZUMAB
     Indication: HEPATOCELLULAR CARCINOMA
     Route: 041
     Dates: start: 20191017, end: 20191017
  9. DURVALUMAB. [Concomitant]
     Active Substance: DURVALUMAB
     Route: 065
     Dates: start: 20191107, end: 20191107
  10. NEXIUM [Concomitant]
     Active Substance: ESOMEPRAZOLE MAGNESIUM
     Indication: GASTRITIS PROPHYLAXIS
     Dosage: DOSAGE IS UNCERTAIN.
     Route: 048
     Dates: start: 2017
  11. REBAMIPIDE [Concomitant]
     Active Substance: REBAMIPIDE
     Indication: GASTRITIS PROPHYLAXIS
     Route: 048
     Dates: start: 2018
  12. DURVALUMAB. [Concomitant]
     Active Substance: DURVALUMAB
     Route: 065
     Dates: start: 20191220, end: 20191220
  13. BEVACIZUMAB. [Suspect]
     Active Substance: BEVACIZUMAB
     Dosage: TREATMENT TIME: 33 MINUTES
     Route: 041
     Dates: start: 20191219
  14. BEVACIZUMAB. [Suspect]
     Active Substance: BEVACIZUMAB
     Route: 041
     Dates: start: 20200220, end: 20200423
  15. BEVACIZUMAB. [Suspect]
     Active Substance: BEVACIZUMAB
     Route: 041
     Dates: start: 20210615, end: 20210615
  16. HERBESSER [Concomitant]
     Active Substance: DILTIAZEM HYDROCHLORIDE
     Indication: ANGINA PECTORIS
     Dosage: DOSAGE IS UNCERTAIN.
     Route: 048
     Dates: start: 2009
  17. BIO?THREE [Concomitant]
     Active Substance: HERBALS
     Indication: PROBIOTIC THERAPY
     Dosage: DOSAGE IS UNCERTAIN.
     Route: 048
     Dates: start: 2018

REACTIONS (6)
  - Hepatic encephalopathy [Not Recovered/Not Resolved]
  - Ascites [Not Recovered/Not Resolved]
  - Peritonitis bacterial [Recovered/Resolved]
  - Tumour pain [Not Recovered/Not Resolved]
  - Protein urine present [Recovered/Resolved]
  - Hyperuricaemia [Recovered/Resolved]

NARRATIVE: CASE EVENT DATE: 20191106
